FAERS Safety Report 4606256-4 (Version None)
Quarter: 2005Q1

REPORT INFORMATION
  Report Type: 
  Country: None (occurrence: None)
  Receive Date: 20050116
  Receipt Date: 20040922
  Transmission Date: 20050727
  Serious: Yes (Death)
  Sender: FDA-Public Use
  Company Number: HQWYE177723SEP04

PATIENT
  Age: 50 Year
  Sex: Male

DRUGS (2)
  1. EFFEXOR [Suspect]
     Indication: DEPRESSION
     Dates: start: 20020101, end: 20021201
  2. LEXAPRO [Suspect]
     Indication: DEPRESSION
     Dates: start: 20020101, end: 20020101

REACTIONS (1)
  - COMPLETED SUICIDE [None]
